FAERS Safety Report 16021133 (Version 1)
Quarter: 2019Q1

REPORT INFORMATION
  Report Type: Spontaneous
  Country: FR (occurrence: FR)
  Receive Date: 20190301
  Receipt Date: 20190301
  Transmission Date: 20190418
  Serious: Yes (Hospitalization)
  Sender: FDA-Public Use
  Company Number: FR-ACCORD-110086

PATIENT
  Age: 61 Year
  Sex: Female
  Weight: 44 kg

DRUGS (2)
  1. CISPLATIN ACCORD [Suspect]
     Active Substance: CISPLATIN
     Indication: ANAL SQUAMOUS CELL CARCINOMA
     Route: 042
     Dates: start: 20180329
  2. FLUOROURACIL. [Suspect]
     Active Substance: FLUOROURACIL
     Indication: ANAL SQUAMOUS CELL CARCINOMA
     Route: 042
     Dates: start: 20180329

REACTIONS (3)
  - Diarrhoea [Recovered/Resolved]
  - Agranulocytosis [Recovered/Resolved]
  - Off label use [Unknown]

NARRATIVE: CASE EVENT DATE: 201804
